FAERS Safety Report 8547993-9 (Version None)
Quarter: 2012Q3

REPORT INFORMATION
  Report Type: 
  Country: None (occurrence: None)
  Receive Date: 20120729
  Receipt Date: 20120724
  Transmission Date: 20120928
  Serious: No
  Sender: FDA-Public Use
  Company Number: US-009507513-1207USA009605

PATIENT

DRUGS (3)
  1. EMEND [Suspect]
     Indication: PROPHYLAXIS OF NAUSEA AND VOMITING
     Dosage: UNK
     Route: 048
     Dates: start: 20110101
  2. ONDANSETRON [Concomitant]
  3. SYNTHROID [Concomitant]

REACTIONS (5)
  - SKIN ATROPHY [None]
  - SKIN HAEMORRHAGE [None]
  - SKIN FISSURES [None]
  - NAUSEA [None]
  - CAPSULE PHYSICAL ISSUE [None]
